FAERS Safety Report 6133426-9 (Version None)
Quarter: 2009Q1

REPORT INFORMATION
  Report Type: 
  Country: None (occurrence: None)
  Receive Date: 20090326
  Receipt Date: 20090313
  Transmission Date: 20090719
  Serious: Yes (Other)
  Sender: FDA-Public Use
  Company Number: GR-PFIZER INC-2009183505

PATIENT

DRUGS (2)
  1. SUNITINIB MALATE [Suspect]
     Indication: RENAL CANCER METASTATIC
     Dosage: EVERY 4 WEEKS
     Dates: start: 20061201
  2. ZOLEDRONIC ACID [Suspect]
     Indication: RENAL CANCER METASTATIC
     Dosage: 4 MG, EVERY 4 WEEKS
     Dates: start: 20061201

REACTIONS (1)
  - OSTEONECROSIS [None]
